FAERS Safety Report 12116727 (Version 3)
Quarter: 2016Q1

REPORT INFORMATION
  Report Type: Spontaneous
  Country: US (occurrence: US)
  Receive Date: 20160225
  Receipt Date: 20160321
  Transmission Date: 20160526
  Serious: Yes (Hospitalization, Other)
  Sender: FDA-Public Use
  Company Number: US-ALEXION PHARMACEUTICALS INC-A201601171

PATIENT
  Sex: Female

DRUGS (1)
  1. SOLIRIS [Suspect]
     Active Substance: ECULIZUMAB
     Indication: HAEMOLYTIC URAEMIC SYNDROME
     Route: 042

REACTIONS (4)
  - Dysstasia [Not Recovered/Not Resolved]
  - Hospitalisation [Not Recovered/Not Resolved]
  - Abasia [Not Recovered/Not Resolved]
  - Vocal cord disorder [Recovering/Resolving]

NARRATIVE: CASE EVENT DATE: 20160224
